FAERS Safety Report 7959760-5 (Version None)
Quarter: 2011Q4

REPORT INFORMATION
  Report Type: 
  Country: None (occurrence: None)
  Receive Date: 20111206
  Receipt Date: 20111201
  Transmission Date: 20120403
  Serious: Yes (Hospitalization)
  Sender: FDA-Public Use
  Company Number: FR-GLAXOSMITHKLINE-B0766416A

PATIENT
  Age: 64 Year
  Sex: Female
  Weight: 70 kg

DRUGS (9)
  1. TRANSIPEG [Concomitant]
  2. PREVISCAN [Suspect]
     Indication: THROMBOPHLEBITIS
     Dosage: 20MG UNKNOWN
     Route: 065
     Dates: start: 20110601, end: 20110720
  3. CHONDROSULF [Concomitant]
  4. ACETAMINOPHEN AND TRAMADOL HCL [Concomitant]
  5. ZOLPIDEM [Concomitant]
  6. PRAMIPEXOLE DIHYDROCHLORIDE [Concomitant]
  7. EFFEXOR [Concomitant]
  8. ARIXTRA [Suspect]
     Indication: THROMBOPHLEBITIS
     Route: 065
     Dates: start: 20110601, end: 20110720
  9. CLONAZEPAM [Concomitant]

REACTIONS (3)
  - MUSCLE HAEMORRHAGE [None]
  - INCORRECT DRUG ADMINISTRATION DURATION [None]
  - ANAEMIA [None]
